FAERS Safety Report 23089555 (Version 1)
Quarter: 2023Q4

REPORT INFORMATION
  Report Type: Spontaneous
  Country: US (occurrence: None)
  Receive Date: 20231019
  Receipt Date: 20231019
  Transmission Date: 20240110
  Serious: Yes (unspecified)
  Sender: FDA-Public Use
  Company Number: None

PATIENT
  Age: 39 Year
  Sex: Female
  Weight: 69.75 kg

DRUGS (1)
  1. WINLEVI [Suspect]
     Active Substance: CLASCOTERONE
     Indication: Acne
     Dosage: FREQUENCY : TWICE A DAY;?
     Route: 061
     Dates: start: 20230814, end: 20230908

REACTIONS (2)
  - Ventricular extrasystoles [None]
  - Supraventricular extrasystoles [None]

NARRATIVE: CASE EVENT DATE: 20230902
